FAERS Safety Report 13375844 (Version 1)
Quarter: 2017Q1

REPORT INFORMATION
  Report Type: Other
  Country: AR (occurrence: AR)
  Receive Date: 20170328
  Receipt Date: 20170328
  Transmission Date: 20170429
  Serious: Yes (Other)
  Sender: FDA-Public Use
  Company Number: AR-HETERO LABS LTD-1064719

PATIENT
  Age: 74 Year
  Sex: Female

DRUGS (1)
  1. LOSARTAN. [Suspect]
     Active Substance: LOSARTAN
     Indication: PRODUCT USED FOR UNKNOWN INDICATION
     Route: 065

REACTIONS (10)
  - Asthenia [Recovered/Resolved]
  - Purpura [Recovered/Resolved]
  - Renal impairment [Not Recovered/Not Resolved]
  - Urine analysis abnormal [Unknown]
  - Arthralgia [Recovered/Resolved]
  - Henoch-Schonlein purpura [Recovered/Resolved]
  - Palpable purpura [Recovered/Resolved]
  - Skin plaque [Recovered/Resolved]
  - Skin lesion [Recovered/Resolved]
  - Focal segmental glomerulosclerosis [Not Recovered/Not Resolved]
